FAERS Safety Report 7972330-8 (Version None)
Quarter: 2011Q4

REPORT INFORMATION
  Report Type: 
  Country: None (occurrence: None)
  Receive Date: 20111213
  Receipt Date: 20111205
  Transmission Date: 20120403
  Serious: No
  Sender: FDA-Public Use
  Company Number: US-BIOGENIDEC-2011BI046149

PATIENT
  Age: 50 Year
  Sex: Female

DRUGS (3)
  1. TYSABRI [Suspect]
     Indication: MULTIPLE SCLEROSIS
     Route: 042
     Dates: start: 20111114
  2. TYSABRI [Suspect]
     Route: 042
     Dates: start: 20071016, end: 20100916
  3. AVONEX [Concomitant]
     Indication: MULTIPLE SCLEROSIS
     Route: 030

REACTIONS (5)
  - GAIT DISTURBANCE [None]
  - STRESS [None]
  - DRUG EFFECT DECREASED [None]
  - FATIGUE [None]
  - BALANCE DISORDER [None]
